FAERS Safety Report 9374712 (Version 1)
Quarter: 2013Q2

REPORT INFORMATION
  Report Type: Spontaneous
  Country: SE (occurrence: SE)
  Receive Date: 20130628
  Receipt Date: 20130628
  Transmission Date: 20140414
  Serious: Yes (Hospitalization)
  Sender: FDA-Public Use
  Company Number: SE-JNJFOC-20130617750

PATIENT
  Age: 41 Year
  Sex: Female

DRUGS (2)
  1. PALEXIA DEPOT [Suspect]
     Indication: PAIN IN EXTREMITY
     Route: 048
     Dates: start: 20130219
  2. PALEXIA DEPOT [Suspect]
     Indication: BACK PAIN
     Route: 048
     Dates: start: 20130219

REACTIONS (2)
  - Alcoholism [Recovered/Resolved]
  - Disease recurrence [None]
